FAERS Safety Report 8381439-9 (Version None)
Quarter: 2012Q2

REPORT INFORMATION
  Report Type: 
  Country: None (occurrence: None)
  Receive Date: 20120523
  Receipt Date: 20120522
  Transmission Date: 20120825
  Serious: Yes (Death, Hospitalization, Other)
  Sender: FDA-Public Use
  Company Number: SI-ROCHE-630606

PATIENT
  Sex: Female
  Weight: 64 kg

DRUGS (6)
  1. EUTHYROX [Concomitant]
     Dates: start: 20060101, end: 20090423
  2. NAKLOFEN DUO [Concomitant]
  3. HALDOL [Concomitant]
     Dates: start: 20090309, end: 20090423
  4. NEXIUM [Concomitant]
  5. XELODA [Suspect]
     Indication: COLORECTAL CANCER METASTATIC
     Route: 048
     Dates: start: 20090320, end: 20090419
  6. REGLAN [Concomitant]
     Dates: start: 20090319, end: 20090423

REACTIONS (3)
  - VOMITING [None]
  - SEPSIS [None]
  - NEUTROPENIA [None]
